FAERS Safety Report 16269852 (Version 2)
Quarter: 2019Q2

REPORT INFORMATION
  Report Type: Spontaneous
  Country: IE (occurrence: IE)
  Receive Date: 20190503
  Receipt Date: 20190513
  Transmission Date: 20190711
  Serious: Yes (Hospitalization, Other)
  Sender: FDA-Public Use
  Company Number: IE-PFIZER INC-2019186897

PATIENT
  Age: 37 Year
  Sex: Female

DRUGS (4)
  1. CALVEPEN [Concomitant]
     Indication: MYALGIA
     Dosage: 666 MG, 4X/DAY
     Route: 048
     Dates: start: 20190404
  2. CALVEPEN [Concomitant]
     Indication: ARTHRALGIA
  3. INFLIXIMAB PFIZER [Suspect]
     Active Substance: INFLIXIMAB
     Indication: RHEUMATOID ARTHRITIS
     Dosage: UNK (5MG/KGS (644MG). LOADING DOSE 0-2-6 WEEK (ON 2ND))
     Route: 042
     Dates: start: 20190409
  4. CALVEPEN [Concomitant]
     Indication: OROPHARYNGEAL PAIN

REACTIONS (6)
  - Throat tightness [Recovering/Resolving]
  - Urticaria [Recovering/Resolving]
  - Flushing [Recovering/Resolving]
  - Nausea [Recovering/Resolving]
  - Ocular hyperaemia [Recovering/Resolving]
  - Chest pain [Recovering/Resolving]

NARRATIVE: CASE EVENT DATE: 20190409
